FAERS Safety Report 17897784 (Version 1)
Quarter: 2020Q2

REPORT INFORMATION
  Report Type: Report from Study
  Country: CN (occurrence: CN)
  Receive Date: 20200616
  Receipt Date: 20200616
  Transmission Date: 20200714
  Serious: Yes (Other)
  Sender: FDA-Public Use
  Company Number: CN-ROCHE-2476651

PATIENT
  Age: 27 Year
  Sex: Male
  Weight: 60 kg

DRUGS (3)
  1. AVASTIN [Suspect]
     Active Substance: BEVACIZUMAB
     Route: 041
     Dates: start: 20180322, end: 20191031
  2. AVASTIN [Suspect]
     Active Substance: BEVACIZUMAB
     Indication: RECTAL CANCER
     Route: 041
     Dates: start: 20170927
  3. AVASTIN [Suspect]
     Active Substance: BEVACIZUMAB
     Route: 041
     Dates: start: 201912, end: 20200528

REACTIONS (3)
  - Perineal ulceration [Unknown]
  - Ill-defined disorder [Not Recovered/Not Resolved]
  - Necrosis [Not Recovered/Not Resolved]
